FAERS Safety Report 13575890 (Version 1)
Quarter: 2017Q2

REPORT INFORMATION
  Report Type: Spontaneous
  Country: US (occurrence: US)
  Receive Date: 20170523
  Receipt Date: 20170523
  Transmission Date: 20170830
  Serious: Yes (Disabling, Other)
  Sender: FDA-Public Use
  Company Number: None

PATIENT
  Age: 90 Year
  Sex: Female
  Weight: 76.5 kg

DRUGS (20)
  1. NAMENDA [Concomitant]
     Active Substance: MEMANTINE HYDROCHLORIDE
  2. COLACE [Concomitant]
     Active Substance: DOCUSATE SODIUM
  3. CRANBERRY. [Concomitant]
     Active Substance: CRANBERRY
  4. ACETAMINOPHEN. [Concomitant]
     Active Substance: ACETAMINOPHEN
  5. FISH OIL [Concomitant]
     Active Substance: FISH OIL
  6. VITAMIN E [Concomitant]
     Active Substance: .ALPHA.-TOCOPHEROL
  7. MULTI VIT [Concomitant]
  8. NITROFURANTOIN. [Suspect]
     Active Substance: NITROFURANTOIN
     Indication: URINARY TRACT INFECTION
     Dosage: ?          QUANTITY:1 CAPSULE(S);?
     Route: 048
  9. BENICAR [Concomitant]
     Active Substance: OLMESARTAN MEDOXOMIL
  10. VOLTAREN [Concomitant]
     Active Substance: DICLOFENAC SODIUM
  11. CITRUCELL [Concomitant]
  12. VITAMIN D [Concomitant]
     Active Substance: CHOLECALCIFEROL
  13. HUMALOG [Concomitant]
     Active Substance: INSULIN LISPRO
  14. LANTUS [Concomitant]
     Active Substance: INSULIN GLARGINE
  15. ASPIRIN. [Concomitant]
     Active Substance: ASPIRIN
  16. CAL/MAG COMPLEX [Concomitant]
  17. VIT B [Concomitant]
     Active Substance: VITAMIN B
  18. VITAMIN C [Concomitant]
     Active Substance: ASCORBIC ACID
  19. ARICEPT [Concomitant]
     Active Substance: DONEPEZIL HYDROCHLORIDE
  20. PAXIL [Concomitant]
     Active Substance: PAROXETINE HYDROCHLORIDE

REACTIONS (19)
  - Aphasia [None]
  - Lung disorder [None]
  - Cough [None]
  - Hypoaesthesia [None]
  - Asthenia [None]
  - Tremor [None]
  - Transient ischaemic attack [None]
  - Dizziness [None]
  - Peripheral swelling [None]
  - Mental status changes [None]
  - Sepsis [None]
  - Paraesthesia [None]
  - Disorientation [None]
  - Skin discolouration [None]
  - Hyperhidrosis [None]
  - Pneumonia [None]
  - Unresponsive to stimuli [None]
  - Delirium [None]
  - Confusional state [None]

NARRATIVE: CASE EVENT DATE: 20170520
